FAERS Safety Report 7026770-4 (Version None)
Quarter: 2010Q4

REPORT INFORMATION
  Report Type: 
  Country: None (occurrence: None)
  Receive Date: 20101004
  Receipt Date: 20100920
  Transmission Date: 20110411
  Serious: Yes (Hospitalization)
  Sender: FDA-Public Use
  Company Number: AT-ROCHE-725954

PATIENT
  Sex: Female
  Weight: 60 kg

DRUGS (8)
  1. BEVACIZUMAB [Suspect]
     Indication: BREAST CANCER
     Dosage: LAST DOSE PRIOR TO EVENT: 30 AUG 2010; DOSE: 15 MG/KG, FORM: VIAL
     Route: 042
     Dates: start: 20100809
  2. TRASTUZUMAB [Suspect]
     Indication: BREAST CANCER
     Dosage: LOADING DOSE
     Route: 042
     Dates: start: 20100809, end: 20100809
  3. TRASTUZUMAB [Suspect]
     Dosage: LAST DOSE PRIOR TO EVENT: 30 AUG 2010; MAINTENANCE DOSE: 6 MG/KG, FORM: VIAL
     Route: 042
     Dates: start: 20100830
  4. DOCETAXEL [Suspect]
     Indication: BREAST CANCER
     Dosage: LAST DOSE PRIOR TO EVENT: 30 AUG 2010; DOSE: 100 MG/M2, FORM: VIAL
     Route: 042
     Dates: start: 20100809
  5. ACETAMINOPHEN [Concomitant]
     Dates: start: 20100905, end: 20100906
  6. GLADEM [Concomitant]
     Dates: start: 20100904
  7. LOVENOX [Concomitant]
     Dates: start: 20100904, end: 20100910
  8. THOMAPYRIN [Concomitant]
     Dates: start: 20100908, end: 20100909

REACTIONS (2)
  - INFECTION [None]
  - INFLAMMATION [None]
